FAERS Safety Report 24311879 (Version 1)
Quarter: 2024Q3

REPORT INFORMATION
  Report Type: Spontaneous
  Country: US (occurrence: None)
  Receive Date: 20240912
  Receipt Date: 20240912
  Transmission Date: 20241017
  Serious: No
  Sender: Public
  Company Number: None

PATIENT
  Sex: Female
  Weight: 80.1 kg

DRUGS (3)
  1. TRABECTEDIN [Suspect]
     Active Substance: TRABECTEDIN
  2. IBUPROFEN [Concomitant]
  3. METOPROLOL [Concomitant]

REACTIONS (7)
  - Pyrexia [None]
  - Productive cough [None]
  - Peripheral swelling [None]
  - Dehydration [None]
  - SARS-CoV-2 test positive [None]
  - Haemoglobin decreased [None]
  - Haematocrit decreased [None]

NARRATIVE: CASE EVENT DATE: 20240904
